FAERS Safety Report 5955955-0 (Version None)
Quarter: 2008Q4

REPORT INFORMATION
  Report Type: 
  Country: None (occurrence: None)
  Receive Date: 20081112
  Receipt Date: 20081029
  Transmission Date: 20090506
  Serious: Yes (Hospitalization)
  Sender: FDA-Public Use
  Company Number: POMP-1000295

PATIENT
  Age: 18 Month
  Weight: 9.1 kg

DRUGS (3)
  1. MYOZYME [Suspect]
     Indication: GLYCOGEN STORAGE DISEASE TYPE II
     Dosage: 20 MG/KG, Q2W, INTRAVENOUS
     Route: 042
     Dates: start: 20070705
  2. ZANTAC 150 [Concomitant]
  3. FLOVENT [Concomitant]

REACTIONS (13)
  - APNOEA [None]
  - CARDIO-RESPIRATORY ARREST [None]
  - INFLUENZA [None]
  - INFUSION RELATED REACTION [None]
  - LEFT VENTRICULAR HYPERTROPHY [None]
  - LOSS OF CONSCIOUSNESS [None]
  - PNEUMONIA ASPIRATION [None]
  - PYREXIA [None]
  - RESPIRATORY ARREST [None]
  - RESPIRATORY DISTRESS [None]
  - RIGHT ATRIAL DILATATION [None]
  - TACHYCARDIA [None]
  - VIRAL INFECTION [None]
